FAERS Safety Report 10175728 (Version 1)
Quarter: 2014Q2

REPORT INFORMATION
  Report Type: Spontaneous
  Country: US (occurrence: US)
  Receive Date: 20140516
  Receipt Date: 20140516
  Transmission Date: 20141212
  Serious: No
  Sender: FDA-Public Use
  Company Number: US-009507513-1405USA004755

PATIENT
  Age: 46 Year
  Sex: Female

DRUGS (3)
  1. PEGINTRON [Suspect]
     Indication: HEPATITIS C
     Dosage: 180 MICROGRAM, WEEKLY, QW
     Route: 058
     Dates: start: 201404
  2. SOVALDI [Suspect]
     Dosage: UNK
  3. RIBASPHERE [Suspect]
     Dosage: UNK

REACTIONS (4)
  - Pyrexia [Unknown]
  - Fatigue [Unknown]
  - Pyrexia [Unknown]
  - Fatigue [Unknown]
